FAERS Safety Report 24170787 (Version 3)
Quarter: 2024Q3

REPORT INFORMATION
  Report Type: Spontaneous
  Country: DE (occurrence: DE)
  Receive Date: 20240805
  Receipt Date: 20240923
  Transmission Date: 20241016
  Serious: Yes (Hospitalization)
  Sender: ROVIPHARM SAS
  Company Number: DE-ROVI-20240743

PATIENT
  Sex: Male

DRUGS (1)
  1. RISPERIDONE [Suspect]
     Active Substance: RISPERIDONE
     Indication: Schizophrenia

REACTIONS (1)
  - Schizophrenia [Not Recovered/Not Resolved]
